FAERS Safety Report 5716523-9 (Version None)
Quarter: 2008Q2

REPORT INFORMATION
  Report Type: 
  Country: None (occurrence: None)
  Receive Date: 20080424
  Receipt Date: 20080416
  Transmission Date: 20081010
  Serious: Yes (Other)
  Sender: FDA-Public Use
  Company Number: JP-SANOFI-SYNTHELABO-A01200804604

PATIENT
  Sex: Male

DRUGS (6)
  1. ISOVORIN [Concomitant]
     Dosage: FOLFOX-6
     Route: 041
     Dates: start: 20070910, end: 20070910
  2. ISOVORIN [Concomitant]
     Dosage: FOLFOX-4
     Route: 041
     Dates: start: 20071123, end: 20071124
  3. ELPLAT [Suspect]
     Indication: RECTAL CANCER
     Route: 041
     Dates: start: 20071123, end: 20071123
  4. AVASTIN [Suspect]
     Route: 041
     Dates: start: 20071123, end: 20071123
  5. FLUOROURACIL [Suspect]
     Dosage: FOLFOX-6: FLUBOLUS THEN INFUSION 2250 MG/BODY
     Route: 042
     Dates: start: 20070909, end: 20070910
  6. FLUOROURACIL [Suspect]
     Dosage: FOLFOX-4: BOLUS THEN INFUSION 600 MG/BODY
     Route: 042
     Dates: start: 20071123, end: 20071124

REACTIONS (1)
  - INTESTINAL FISTULA [None]
